FAERS Safety Report 18434330 (Version 1)
Quarter: 2020Q4

REPORT INFORMATION
  Report Type: Spontaneous
  Country: GB (occurrence: GB)
  Receive Date: 20201028
  Receipt Date: 20201028
  Transmission Date: 20210114
  Serious: Yes (Hospitalization, Disabling, Other)
  Sender: FDA-Public Use
  Company Number: GB-ACCORD-206425

PATIENT
  Age: 82 Year
  Sex: Female
  Weight: 82.4 kg

DRUGS (5)
  1. ATORVASTATIN/ATORVASTATIN CALCIUM [Suspect]
     Active Substance: ATORVASTATIN CALCIUM
     Indication: PRODUCT USED FOR UNKNOWN INDICATION
  2. DILTIAZEM/DILTIAZEM HYDROCHLORIDE/DILTIAZEM MALATE [Interacting]
     Active Substance: DILTIAZEM
     Indication: ANGINA PECTORIS
     Dosage: SPLIT THE DOSE OF 180MG OVER THREE ADMINISTRATIONS, 08:00, 13:00 AND 22:00.
     Route: 048
     Dates: start: 20200819, end: 20200928
  3. FUROSEMIDE. [Concomitant]
     Active Substance: FUROSEMIDE
  4. ACETYLSALICYLIC ACID [Concomitant]
     Active Substance: ASPIRIN
  5. LANSOPRAZOLE. [Concomitant]
     Active Substance: LANSOPRAZOLE

REACTIONS (11)
  - Decreased appetite [Recovering/Resolving]
  - Wrong technique in product usage process [Unknown]
  - Nausea [Recovering/Resolving]
  - Delirium [Unknown]
  - Labelled drug-drug interaction medication error [Unknown]
  - Hot flush [Recovering/Resolving]
  - Fatigue [Recovering/Resolving]
  - Abdominal pain upper [Recovering/Resolving]
  - Dry mouth [Recovering/Resolving]
  - Pruritus [Recovering/Resolving]
  - Thrombocytopenia [Unknown]

NARRATIVE: CASE EVENT DATE: 20200820
